FAERS Safety Report 10115482 (Version 2)
Quarter: 2015Q1

REPORT INFORMATION
  Report Type: Other
  Country: US (occurrence: US)
  Receive Date: 20140426
  Receipt Date: 20150224
  Transmission Date: 20150720
  Serious: Yes (Hospitalization, Other)
  Sender: FDA-Public Use
  Company Number: US-GSKPPD-2014GSK016554

PATIENT
  Age: 79 Year
  Sex: Male

DRUGS (8)
  1. AVANDIA [Suspect]
     Active Substance: ROSIGLITAZONE MALEATE
     Indication: DIABETES MELLITUS
     Dosage: AVANDIA WAS NOT LISTED AMONG THE PATIENTS RECORDS REVIEWED.
     Route: 048
  2. APRESOLINE HYDROCHLORIDE [Concomitant]
     Active Substance: HYDRALAZINE HYDROCHLORIDE
  3. LASIX [Concomitant]
     Active Substance: FUROSEMIDE
  4. CARDURA [Concomitant]
     Active Substance: DOXAZOSIN MESYLATE
  5. AMIODARONE [Concomitant]
     Active Substance: AMIODARONE
  6. ISORDIL [Concomitant]
     Active Substance: ISOSORBIDE DINITRATE
  7. COUMADIN [Concomitant]
     Active Substance: WARFARIN SODIUM
  8. ALDACTONE [Concomitant]
     Active Substance: SPIRONOLACTONE

REACTIONS (5)
  - Atrial fibrillation [Recovered/Resolved]
  - Myocardial infarction [Unknown]
  - Cardiac failure congestive [Recovered/Resolved]
  - Cardiac arrest [Recovered/Resolved]
  - Ventricular fibrillation [Recovered/Resolved]

NARRATIVE: CASE EVENT DATE: 20041111
